FAERS Safety Report 8566553 (Version 2)
Quarter: 2012Q4

REPORT INFORMATION
  Report Type: 
  Country: GB (occurrence: GB)
  Receive Date: 20120517
  Receipt Date: 20120910
  Transmission Date: 20130627
  Serious: Yes (Other)
  Sender: FDA-Public Use
  Company Number: PHFR2012GB002919

PATIENT
  Age: 61 Year
  Sex: Male

DRUGS (8)
  1. CLOZARIL [Suspect]
     Indication: SCHIZOPHRENIA
     Dosage: 25 mg, BID
     Route: 048
     Dates: start: 20110520, end: 20120514
  2. STALEVO [Concomitant]
     Dosage: 150 mg, (3 per day)
     Route: 048
  3. STALEVO [Concomitant]
     Dosage: 200 mg, (2 per day)
     Route: 048
  4. MADOPAR [Concomitant]
     Dosage: 62.5 , QD
     Route: 048
  5. NAPROXEN [Concomitant]
     Dosage: 500 mg, BID
     Route: 048
  6. PREGABALIN [Concomitant]
     Dosage: 7.5
     Route: 048
  7. DESMOTABS [Concomitant]
  8. OMEPRAZOLE [Concomitant]

REACTIONS (3)
  - Blood urine present [Unknown]
  - Alanine aminotransferase increased [Unknown]
  - Gamma-glutamyltransferase increased [Unknown]
